FAERS Safety Report 7349072-5 (Version None)
Quarter: 2011Q1

REPORT INFORMATION
  Report Type: 
  Country: None (occurrence: None)
  Receive Date: 20110303
  Receipt Date: 20110218
  Transmission Date: 20110831
  Serious: No
  Sender: FDA-Public Use
  Company Number: 2011-00068

PATIENT
  Age: 56 Year
  Sex: Female

DRUGS (5)
  1. MULTI-VITAMIN [Concomitant]
  2. VITAMIN E [Concomitant]
  3. LISINOPRIL [Concomitant]
  4. ZICAM COLD REMEDY RAPIDMELTS W/ VITAMIN C + ECHINACEA [Suspect]
     Dosage: Q 6-7 HOURS X 3 DAYS
     Dates: start: 20110124, end: 20110126
  5. VITAMIN D [Concomitant]

REACTIONS (3)
  - DRY MOUTH [None]
  - HYPOGEUSIA [None]
  - HYPOSMIA [None]
